FAERS Safety Report 8000205-7 (Version None)
Quarter: 2011Q4

REPORT INFORMATION
  Report Type: 
  Country: None (occurrence: None)
  Receive Date: 20111123
  Receipt Date: 20111011
  Transmission Date: 20120403
  Serious: Yes (Other)
  Sender: FDA-Public Use
  Company Number: 335959

PATIENT
  Age: 75 Year
  Sex: Female
  Weight: 78 kg

DRUGS (2)
  1. VICTOZA [Suspect]
     Indication: TYPE 2 DIABETES MELLITUS
     Dosage: 1.2 MG, QD, SUBCUTANEOUS
     Route: 058
     Dates: start: 20110701, end: 20110726
  2. METFORMIN HCL [Concomitant]

REACTIONS (1)
  - PANCREATITIS ACUTE [None]
